FAERS Safety Report 4755818-2 (Version None)
Quarter: 2005Q3

REPORT INFORMATION
  Report Type: 
  Country: None (occurrence: None)
  Receive Date: 20050826
  Receipt Date: 20050106
  Transmission Date: 20060218
  Serious: Yes (Other)
  Sender: FDA-Public Use
  Company Number: USA-2003-0009365

PATIENT
  Age: 31 Year
  Sex: Male

DRUGS (1)
  1. OXYCONTIN [Suspect]
     Indication: PAIN
     Dosage: 40 MG, Q12H, ORAL
     Route: 048

REACTIONS (3)
  - DRUG ABUSER [None]
  - MEDICATION ERROR [None]
  - SEDATION [None]
